FAERS Safety Report 26108005 (Version 1)
Quarter: 2025Q4

REPORT INFORMATION
  Report Type: Spontaneous
  Country: US (occurrence: US)
  Receive Date: 20251201
  Receipt Date: 20251201
  Transmission Date: 20260117
  Serious: No
  Sender: SANOFI AVENTIS
  Company Number: US-SA-2025SA358583

PATIENT
  Age: 10 Year
  Sex: Male

DRUGS (3)
  1. DUPIXENT [Suspect]
     Active Substance: DUPILUMAB
     Indication: Dermatitis atopic
     Dosage: 400 MG, 1X
     Route: 058
     Dates: start: 20251007, end: 20251007
  2. DUPIXENT [Suspect]
     Active Substance: DUPILUMAB
     Dosage: 200 MG, 1X, ON DAY 15
     Route: 058
     Dates: start: 20251023, end: 20251023
  3. DUPIXENT [Suspect]
     Active Substance: DUPILUMAB
     Dosage: 200 MG, QOW
     Route: 058
     Dates: start: 20251113

REACTIONS (5)
  - Dermatitis atopic [Not Recovered/Not Resolved]
  - Dry eye [Not Recovered/Not Resolved]
  - Dry skin [Not Recovered/Not Resolved]
  - Eyelid skin dryness [Not Recovered/Not Resolved]
  - Inappropriate schedule of product administration [Unknown]

NARRATIVE: CASE EVENT DATE: 20251022
